FAERS Safety Report 10511683 (Version 18)
Quarter: 2015Q4

REPORT INFORMATION
  Report Type: Report from Study
  Country: US (occurrence: US)
  Receive Date: 20141010
  Receipt Date: 20151123
  Transmission Date: 20160304
  Serious: Yes (Hospitalization, Other)
  Sender: FDA-Public Use
  Company Number: US-ALEXION PHARMACEUTICALS INC-A201403831

PATIENT
  Sex: Female

DRUGS (5)
  1. DANAZOL. [Suspect]
     Active Substance: DANAZOL
     Indication: MYELODYSPLASTIC SYNDROME
     Dosage: UNK
     Route: 065
  2. OXYGEN. [Concomitant]
     Active Substance: OXYGEN
     Indication: EMPHYSEMA
  3. SOLIRIS [Suspect]
     Active Substance: ECULIZUMAB
     Indication: PAROXYSMAL NOCTURNAL HAEMOGLOBINURIA
     Dosage: UNK
     Route: 042
     Dates: start: 20140912
  4. PREDNISONE. [Concomitant]
     Active Substance: PREDNISONE
     Indication: PRODUCT USED FOR UNKNOWN INDICATION
     Dosage: UNK
     Route: 065
  5. OXYGEN. [Concomitant]
     Active Substance: OXYGEN
     Indication: CHRONIC OBSTRUCTIVE PULMONARY DISEASE
     Dosage: 4 L, UNK
     Route: 065

REACTIONS (33)
  - Clostridium difficile infection [Unknown]
  - Peripheral swelling [Unknown]
  - Abdominal pain [Not Recovered/Not Resolved]
  - Malaise [Unknown]
  - Haemoglobin abnormal [Unknown]
  - Urine output decreased [Unknown]
  - Haemoglobin abnormal [Unknown]
  - Neutrophil count decreased [Not Recovered/Not Resolved]
  - Serum ferritin increased [Unknown]
  - Myelodysplastic syndrome [Not Recovered/Not Resolved]
  - Blood lactate dehydrogenase increased [Unknown]
  - Fibrin D dimer increased [Unknown]
  - Haematocrit decreased [Not Recovered/Not Resolved]
  - Haematocrit abnormal [Unknown]
  - Condition aggravated [Unknown]
  - Anaemia [Unknown]
  - Diarrhoea [Unknown]
  - Aplastic anaemia [Unknown]
  - Haemoglobin decreased [Not Recovered/Not Resolved]
  - Haematocrit abnormal [Unknown]
  - White blood cell count decreased [Not Recovered/Not Resolved]
  - Red blood cell count decreased [Unknown]
  - Pulmonary embolism [Unknown]
  - Platelet disorder [Unknown]
  - Fatigue [Unknown]
  - Platelet count decreased [Not Recovered/Not Resolved]
  - Pharyngitis streptococcal [Unknown]
  - Serum ferritin increased [Unknown]
  - Depression [Not Recovered/Not Resolved]
  - Diarrhoea [Unknown]
  - Petechiae [Not Recovered/Not Resolved]
  - Platelet disorder [Unknown]
  - Rash [Unknown]

NARRATIVE: CASE EVENT DATE: 20140920
